FAERS Safety Report 14301855 (Version 1)
Quarter: 2017Q4

REPORT INFORMATION
  Report Type: Spontaneous
  Country: KR (occurrence: KR)
  Receive Date: 20171219
  Receipt Date: 20171219
  Transmission Date: 20180321
  Serious: Yes (Other)
  Sender: FDA-Public Use
  Company Number: KR-JAZZ-2017-KR-016694

PATIENT
  Age: 30 Year
  Sex: Male

DRUGS (4)
  1. PREDNISOLONE. [Suspect]
     Active Substance: PREDNISOLONE
     Indication: T-CELL TYPE ACUTE LEUKAEMIA
     Dosage: UNK
  2. ASPARAGINASE [Suspect]
     Active Substance: ASPARAGINASE
     Indication: T-CELL TYPE ACUTE LEUKAEMIA
     Dosage: UNK
  3. VINCRISTINE [Suspect]
     Active Substance: VINCRISTINE
     Indication: T-CELL TYPE ACUTE LEUKAEMIA
     Dosage: UNK
  4. DAUNORUBICIN [Suspect]
     Active Substance: DAUNORUBICIN
     Indication: T-CELL TYPE ACUTE LEUKAEMIA
     Dosage: UNK

REACTIONS (3)
  - Cough [Unknown]
  - Pleuritic pain [Unknown]
  - Pyrexia [Unknown]
